FAERS Safety Report 6832158-9 (Version None)
Quarter: 2010Q3

REPORT INFORMATION
  Report Type: 
  Country: None (occurrence: None)
  Receive Date: 20100712
  Receipt Date: 20100630
  Transmission Date: 20110219
  Serious: Yes (Other)
  Sender: FDA-Public Use
  Company Number: CH-WYE-G06343010

PATIENT
  Sex: Female

DRUGS (1)
  1. EFFEXOR [Suspect]
     Dosage: DATES AND DOSAGE UNKNOWN

REACTIONS (7)
  - ANGER [None]
  - ANTIDEPRESSANT DRUG LEVEL INCREASED [None]
  - DYSARTHRIA [None]
  - EPILEPSY [None]
  - FACTITIOUS DISORDER [None]
  - LETHARGY [None]
  - TRANCE [None]
